FAERS Safety Report 12417933 (Version 9)
Quarter: 2019Q2

REPORT INFORMATION
  Report Type: Spontaneous
  Country: FR (occurrence: FR)
  Receive Date: 20160531
  Receipt Date: 20190522
  Transmission Date: 20190711
  Serious: Yes (Other)
  Sender: FDA-Public Use
  Company Number: FR-AUROBINDO-AUR-APL-2015-04026

PATIENT

DRUGS (9)
  1. LORAZEPAM. [Concomitant]
     Active Substance: LORAZEPAM
     Indication: BIPOLAR DISORDER
     Dosage: 5 MILLIGRAM
     Route: 065
  2. MIANSERINE [Concomitant]
     Active Substance: MIANSERIN HYDROCHLORIDE
     Indication: BIPOLAR DISORDER
     Dosage: 40 MG, DAILY
     Route: 065
  3. LOXAPAC [Interacting]
     Active Substance: LOXAPINE
     Indication: BIPOLAR DISORDER
  4. LITHIUM. [Concomitant]
     Active Substance: LITHIUM
     Indication: BIPOLAR DISORDER
     Dosage: UNK
     Route: 065
  5. VALPROIC ACID. [Suspect]
     Active Substance: VALPROIC ACID
     Indication: BIPOLAR DISORDER
     Dosage: 500 MG, TWO TIMES A DAY
     Route: 065
  6. LOXAPAC [Interacting]
     Active Substance: LOXAPINE
     Indication: AGITATION
     Dosage: 300 MG, UNK
     Route: 042
  7. LITHIUM. [Concomitant]
     Active Substance: LITHIUM
     Dosage: SOLUTION
     Route: 065
  8. LITHIUM. [Concomitant]
     Active Substance: LITHIUM
     Dosage: SUSTAINED RELEASE FORMULATION
     Route: 065
  9. LORAZEPAM. [Concomitant]
     Active Substance: LORAZEPAM
     Dosage: IN THREE DOSES
     Route: 065

REACTIONS (16)
  - Alanine aminotransferase increased [Recovered/Resolved]
  - Catatonia [Recovering/Resolving]
  - Gamma-glutamyltransferase increased [Recovered/Resolved]
  - Condition aggravated [Unknown]
  - Hyperthermia [Recovered/Resolved]
  - Tremor [Recovered/Resolved]
  - Musculoskeletal stiffness [Recovering/Resolving]
  - Drug level above therapeutic [Recovered/Resolved]
  - Agitation [Recovering/Resolving]
  - Neuroleptic malignant syndrome [Recovering/Resolving]
  - Extrapyramidal disorder [Recovered/Resolved]
  - Altered state of consciousness [Recovered/Resolved]
  - Drug level increased [Recovered/Resolved]
  - Rhabdomyolysis [Recovering/Resolving]
  - Drug interaction [Recovering/Resolving]
  - Aspartate aminotransferase increased [Recovered/Resolved]
